FAERS Safety Report 24822302 (Version 1)
Quarter: 2025Q1

REPORT INFORMATION
  Report Type: Spontaneous
  Country: US (occurrence: US)
  Receive Date: 20250108
  Receipt Date: 20250108
  Transmission Date: 20250409
  Serious: No
  Sender: BAUSCH AND LOMB
  Company Number: US-BAUSCH-BL-2025-000160

PATIENT
  Age: 63 Year
  Sex: Female
  Weight: 63.56 kg

DRUGS (2)
  1. XIFAXAN [Suspect]
     Active Substance: RIFAXIMIN
     Indication: Irritable bowel syndrome
     Dosage: 550 MG TID
     Route: 048
     Dates: start: 20250101
  2. DICYCLOMINE [Concomitant]
     Active Substance: DICYCLOMINE HYDROCHLORIDE
     Indication: Product used for unknown indication

REACTIONS (2)
  - Diarrhoea [Not Recovered/Not Resolved]
  - Expired product administered [Unknown]

NARRATIVE: CASE EVENT DATE: 20250101
